FAERS Safety Report 6265441-9 (Version None)
Quarter: 2009Q3

REPORT INFORMATION
  Report Type: 
  Country: None (occurrence: None)
  Receive Date: 20090709
  Receipt Date: 20090625
  Transmission Date: 20100115
  Serious: Yes (Hospitalization)
  Sender: FDA-Public Use
  Company Number: FR-2009-1369

PATIENT
  Sex: Female

DRUGS (2)
  1. NAVELBINE [Suspect]
     Indication: LUNG NEOPLASM MALIGNANT
     Dosage: 44.5 MG/M2 IV
     Route: 042
     Dates: start: 20090127
  2. CISPLATIN [Suspect]
     Indication: LUNG NEOPLASM MALIGNANT
     Dosage: 47.53 MG/M2 IV
     Route: 042
     Dates: start: 20090127, end: 20090226

REACTIONS (4)
  - DEHYDRATION [None]
  - FEBRILE BONE MARROW APLASIA [None]
  - NAUSEA [None]
  - VOMITING [None]
